FAERS Safety Report 8155000-5 (Version None)
Quarter: 2012Q1

REPORT INFORMATION
  Report Type: 
  Country: None (occurrence: None)
  Receive Date: 20120221
  Receipt Date: 20120219
  Transmission Date: 20120608
  Serious: Yes (Death)
  Sender: FDA-Public Use
  Company Number: PHHY2012MX014344

PATIENT
  Age: 45 Year

DRUGS (2)
  1. PEGINTERFERON ALFA-2B [Concomitant]
  2. EXJADE [Suspect]
     Indication: SERUM FERRITIN INCREASED
     Dosage: UNK UKN, UNK
     Route: 048

REACTIONS (1)
  - UPPER RESPIRATORY TRACT INFECTION [None]
